FAERS Safety Report 17961294 (Version 1)
Quarter: 2020Q2

REPORT INFORMATION
  Report Type: Spontaneous
  Country: US (occurrence: US)
  Receive Date: 20200630
  Receipt Date: 20200630
  Transmission Date: 20200714
  Serious: No
  Sender: FDA-Public Use
  Company Number: US-MYLANLABS-2020M1057495

PATIENT
  Age: 48 Year
  Sex: Female
  Weight: 104 kg

DRUGS (2)
  1. LIDOCAINE PATCH [Suspect]
     Active Substance: LIDOCAINE
     Indication: EXOSTOSIS
  2. LIDOCAINE PATCH [Suspect]
     Active Substance: LIDOCAINE
     Indication: MUSCULOSKELETAL PAIN
     Dosage: UNK
     Dates: start: 20200526

REACTIONS (3)
  - Drug ineffective for unapproved indication [Not Recovered/Not Resolved]
  - Product quality issue [Unknown]
  - Product adhesion issue [Not Recovered/Not Resolved]

NARRATIVE: CASE EVENT DATE: 20200526
